FAERS Safety Report 8981523 (Version 1)
Quarter: 2012Q4

REPORT INFORMATION
  Report Type: 
  Country: AR (occurrence: AR)
  Receive Date: 20121221
  Receipt Date: 20121221
  Transmission Date: 20130627
  Serious: Yes (Hospitalization)
  Sender: FDA-Public Use
  Company Number: AR-MYLANLABS-2012S1025589

PATIENT
  Age: 57 Year
  Sex: Male

DRUGS (5)
  1. FENOFIBRATE [Suspect]
     Indication: DYSLIPIDAEMIA
     Dosage: 200 mg/day
     Route: 065
  2. MYCOPHENOLATE MOFETIL [Interacting]
     Indication: IMMUNOSUPPRESSANT DRUG THERAPY
     Route: 065
  3. MEPREDNISONE [Concomitant]
     Indication: IMMUNOSUPPRESSANT DRUG THERAPY
     Dosage: 4mg daily
     Route: 065
  4. LOSARTAN [Concomitant]
     Indication: HYPERTENSION
     Dosage: 50mg daily
     Route: 065
  5. INEGY [Concomitant]
     Indication: DYSLIPIDAEMIA
     Dosage: Ezetimibe/simvastatin 10mg/20mg
     Route: 065

REACTIONS (2)
  - Febrile neutropenia [Recovered/Resolved]
  - Drug interaction [Recovered/Resolved]
